APPROVED DRUG PRODUCT: CEFAZOLIN SODIUM
Active Ingredient: CEFAZOLIN SODIUM
Strength: EQ 10GM BASE/VIAL
Dosage Form/Route: INJECTABLE;INJECTION
Application: A065247 | Product #001
Applicant: HOSPIRA INC
Approved: Aug 12, 2005 | RLD: No | RS: No | Type: DISCN